FAERS Safety Report 7174808-6 (Version None)
Quarter: 2010Q4

REPORT INFORMATION
  Report Type: 
  Country: None (occurrence: None)
  Receive Date: 20101202
  Receipt Date: 20101119
  Transmission Date: 20110411
  Serious: Yes (Death, Life-Threatening, Hospitalization)
  Sender: FDA-Public Use
  Company Number: TCI2010A04091

PATIENT
  Age: 74 Year
  Sex: Male

DRUGS (8)
  1. ACTOS [Suspect]
     Indication: TYPE 2 DIABETES MELLITUS
     Dosage: (15 MG (15 MG, 1 IN 1 D) ORAL) (30 MG (30 MG, 1 IN 1 D) ORAL)
     Route: 048
     Dates: start: 20080415, end: 20080728
  2. ACTOS [Suspect]
     Indication: TYPE 2 DIABETES MELLITUS
     Dosage: (15 MG (15 MG, 1 IN 1 D) ORAL) (30 MG (30 MG, 1 IN 1 D) ORAL)
     Route: 048
     Dates: start: 20080729, end: 20081018
  3. DIOVAN [Concomitant]
  4. NORVASC [Concomitant]
  5. TEGRETOL [Concomitant]
  6. ASPIRIN [Concomitant]
  7. DOXAZOSIN MESYLATE [Concomitant]
  8. LIVALO (ITAVASTATIN CALCIUM) [Concomitant]

REACTIONS (1)
  - PLEURAL EFFUSION [None]
